FAERS Safety Report 8796085 (Version 1)
Quarter: 2012Q4

REPORT INFORMATION
  Report Type: 
  Country: FR (occurrence: FR)
  Receive Date: 20120920
  Receipt Date: 20120920
  Transmission Date: 20130627
  Serious: Yes (Death, Hospitalization)
  Sender: FDA-Public Use
  Company Number: FR-BRISTOL-MYERS SQUIBB COMPANY-16949000

PATIENT
  Age: 84 Year
  Sex: Male

DRUGS (3)
  1. COUMADINE [Suspect]
     Route: 048
     Dates: end: 20120628
  2. OCTAPLEX [Concomitant]
     Route: 042
  3. VITAMIN K [Concomitant]

REACTIONS (5)
  - Subarachnoid haemorrhage [Fatal]
  - Fall [Unknown]
  - Skull fracture [Unknown]
  - Thoracic vertebral fracture [Unknown]
  - Lumbar vertebral fracture [Unknown]
